FAERS Safety Report 8098793-8 (Version None)
Quarter: 2012Q1

REPORT INFORMATION
  Report Type: 
  Country: None (occurrence: None)
  Receive Date: 20120131
  Receipt Date: 20120123
  Transmission Date: 20120608
  Serious: Yes (Other)
  Sender: FDA-Public Use
  Company Number: DE-B.I. PHARMACEUTICALS,INC./RIDGEFIELD-2012-DE-00329DE

PATIENT
  Sex: Female

DRUGS (10)
  1. PRADAXA [Suspect]
     Indication: ATRIAL FIBRILLATION
     Dates: start: 20111013, end: 20111111
  2. METOPROLOLSUCCI WIN [Concomitant]
     Dosage: 190 MG
  3. RAMIPRIL 1A PHARMA [Concomitant]
     Dosage: 2.5 MG
  4. L THYROXIN RATIO [Concomitant]
     Dosage: 50 MCG
  5. MCP AL TROPFEN [Concomitant]
  6. TRANSTEC PRO [Concomitant]
     Dosage: 35 MCG
  7. ALLOPURINOL RAT [Concomitant]
     Dosage: 100 MG
  8. OMEPRAZOL RATIO NT [Concomitant]
     Dosage: 40 MG
  9. SIMVASTATIN HEUMANN [Concomitant]
     Dosage: 20 MG
  10. TORASEMID 1 A PHARMA [Concomitant]
     Dosage: 2.5 MG

REACTIONS (2)
  - BLOOD CREATININE INCREASED [None]
  - GENERAL PHYSICAL CONDITION [None]
